FAERS Safety Report 23883511 (Version 2)
Quarter: 2024Q2

REPORT INFORMATION
  Report Type: Report from Study
  Country: CO (occurrence: CO)
  Receive Date: 20240522
  Receipt Date: 20240629
  Transmission Date: 20240715
  Serious: Yes (Hospitalization)
  Sender: FDA-Public Use
  Company Number: CO-JNJFOC-20240547198

PATIENT
  Age: 52 Year
  Sex: Male
  Weight: 80 kg

DRUGS (1)
  1. TREMFYA [Suspect]
     Active Substance: GUSELKUMAB
     Indication: Psoriasis
     Dosage: DATE OF LAST ADMINISTRATION WAS ON 21-FEB-2024
     Route: 058
     Dates: start: 20211202, end: 202403

REACTIONS (1)
  - Prostate cancer [Recovered/Resolved]
